FAERS Safety Report 4872213-6 (Version None)
Quarter: 2005Q4

REPORT INFORMATION
  Report Type: 
  Country: None (occurrence: None)
  Receive Date: 20051201
  Receipt Date: 20050802
  Transmission Date: 20060501
  Serious: No
  Sender: FDA-Public Use
  Company Number: 2005PV000751

PATIENT
  Age: 44 Year
  Sex: Male
  Weight: 63.5036 kg

DRUGS (8)
  1. BYETTA [Suspect]
     Indication: DIABETES MELLITUS NON-INSULIN-DEPENDENT
     Dosage: 5  MCG' BID; SC
     Route: 058
     Dates: start: 20050731
  2. ACTOS [Concomitant]
  3. PREVACID [Concomitant]
  4. TARKA [Concomitant]
  5. VITAMINS [Concomitant]
  6. LANTUS [Concomitant]
  7. ALPHA LIPOIC ACID [Concomitant]
  8. VITAMIN B6 [Concomitant]

REACTIONS (11)
  - BLOOD GLUCOSE INCREASED [None]
  - COLD SWEAT [None]
  - FATIGUE [None]
  - FEELING ABNORMAL [None]
  - FEELING COLD [None]
  - HYPERHIDROSIS [None]
  - HYPERSOMNIA [None]
  - INSOMNIA [None]
  - NAUSEA [None]
  - PALLOR [None]
  - VOMITING [None]
